FAERS Safety Report 9557478 (Version 1)
Quarter: 2013Q3

REPORT INFORMATION
  Report Type: Spontaneous
  Country: AU (occurrence: None)
  Receive Date: 20130924
  Receipt Date: 20130924
  Transmission Date: 20140515
  Serious: Yes (Death, Other)
  Sender: FDA-Public Use
  Company Number: KAD201309-001207

PATIENT
  Age: 33 Year
  Sex: Male

DRUGS (3)
  1. RIBAVIRIN [Suspect]
     Indication: CHRONIC HEPATITIS C
     Dosage: 1000 MG/DAY
  2. PEGINTERFERON [Suspect]
     Indication: CHRONIC HEPATITIS C
  3. BOCEPREVIR (BOCEPREVIR) [Suspect]
     Indication: CHRONIC HEPATITIS C
     Dosage: 2400 MG/DAY

REACTIONS (7)
  - Sepsis [None]
  - Tuberculosis [None]
  - Anaemia [None]
  - Pulmonary necrosis [None]
  - Pneumonia [None]
  - Infection in an immunocompromised host [None]
  - Gangrene [None]
